FAERS Safety Report 6470645-6 (Version None)
Quarter: 2009Q4

REPORT INFORMATION
  Report Type: 
  Country: None (occurrence: None)
  Receive Date: 20091203
  Receipt Date: 20091120
  Transmission Date: 20100525
  Serious: Yes (Other)
  Sender: FDA-Public Use
  Company Number: GR-MYLANLABS-2009S1020291

PATIENT
  Sex: Female

DRUGS (6)
  1. SOTALOL HCL [Suspect]
     Indication: ATRIAL FLUTTER
     Route: 048
  2. KARVEZIDE [Concomitant]
     Indication: HYPERTENSION
     Route: 048
  3. QVAR 40 [Concomitant]
     Indication: ASTHMA
     Route: 055
  4. AEROLIN /00139501/ [Concomitant]
     Indication: ASTHMA
     Route: 055
  5. LEXOTANIL [Concomitant]
     Indication: ANXIETY
     Route: 048
  6. GAVISCON [Concomitant]
     Indication: DYSPEPSIA
     Route: 048

REACTIONS (3)
  - ATRIAL FLUTTER [None]
  - DRUG INEFFECTIVE [None]
  - MUCOUS MEMBRANE DISORDER [None]
